FAERS Safety Report 6653364-2 (Version None)
Quarter: 2010Q1

REPORT INFORMATION
  Report Type: 
  Country: None (occurrence: None)
  Receive Date: 20100326
  Receipt Date: 20100315
  Transmission Date: 20100710
  Serious: Yes (Other)
  Sender: FDA-Public Use
  Company Number: PHHY2010DE17478

PATIENT
  Age: 57 Year
  Sex: Male

DRUGS (2)
  1. LEPONEX [Suspect]
     Dosage: 225 MG/DAY
     Route: 048
  2. DIAZEPAM [Concomitant]
     Dosage: 1 TABLET TO NIGHT
     Route: 048

REACTIONS (2)
  - COAGULOPATHY [None]
  - HAEMOGLOBIN DECREASED [None]
